FAERS Safety Report 5170398-8 (Version None)
Quarter: 2006Q4

REPORT INFORMATION
  Report Type: 
  Country: None (occurrence: None)
  Receive Date: 20061212
  Receipt Date: 20061127
  Transmission Date: 20070319
  Serious: Yes (Other)
  Sender: FDA-Public Use
  Company Number: US-SANOFI-SYNTHELABO-A03200607031

PATIENT
  Sex: Male

DRUGS (2)
  1. UROXATRAL [Suspect]
     Indication: PROSTATE EXAMINATION ABNORMAL
     Dosage: UNK
     Route: 048
     Dates: start: 20060426
  2. TERAZOSIN HCL [Suspect]
     Indication: PROSTATE EXAMINATION ABNORMAL
     Route: 048
     Dates: start: 20060101

REACTIONS (2)
  - DRUG INEFFECTIVE [None]
  - PROSTATE CANCER [None]
